FAERS Safety Report 9367320 (Version 1)
Quarter: 2013Q2

REPORT INFORMATION
  Report Type: Spontaneous
  Country: US (occurrence: US)
  Receive Date: 20130625
  Receipt Date: 20130625
  Transmission Date: 20140414
  Serious: No
  Sender: FDA-Public Use
  Company Number: US-009507513-1306USA006690

PATIENT
  Age: 82 Year
  Sex: Male

DRUGS (1)
  1. AZASITE [Suspect]
     Indication: EYE INFECTION
     Dosage: 1%, ONE DROP IN EACH EYE ONCE DAILY
     Route: 047
     Dates: start: 20130612, end: 20130612

REACTIONS (1)
  - Eye irritation [Recovering/Resolving]
